FAERS Safety Report 8906979 (Version 1)
Quarter: 2012Q4

REPORT INFORMATION
  Report Type: Report from Study
  Country: KR (occurrence: KR)
  Receive Date: 20121114
  Receipt Date: 20121114
  Transmission Date: 20130627
  Serious: Yes (Hospitalization)
  Sender: FDA-Public Use
  Company Number: KR-GLAXOSMITHKLINE-B0795910B

PATIENT
  Age: 27 Year
  Sex: Female
  Weight: 47 kg

DRUGS (3)
  1. BELIMUMAB [Suspect]
     Indication: SYSTEMIC LUPUS ERYTHEMATOSUS
     Route: 042
     Dates: start: 20120126
  2. TALNIFLUMATE [Concomitant]
  3. CIMETIDINE [Concomitant]
     Indication: GASTRITIS PROPHYLAXIS
     Dosage: 200MG Three times per day
     Route: 048
     Dates: start: 20120825, end: 20120828

REACTIONS (1)
  - Herpes zoster [Recovered/Resolved]
